FAERS Safety Report 7406218-8 (Version None)
Quarter: 2011Q2

REPORT INFORMATION
  Report Type: 
  Country: None (occurrence: None)
  Receive Date: 20110411
  Receipt Date: 20110331
  Transmission Date: 20111010
  Serious: Yes (Hospitalization, Other)
  Sender: FDA-Public Use
  Company Number: RU-JNJFOC-20110308718

PATIENT
  Age: 43 Year
  Sex: Female
  Weight: 77 kg

DRUGS (4)
  1. LEVOTHYROXINE [Concomitant]
     Indication: GOITRE
     Route: 048
  2. ACYCLOVIR [Concomitant]
     Indication: GENITAL HERPES
     Route: 048
  3. GOLIMUMAB [Suspect]
     Indication: RHEUMATOID ARTHRITIS
     Route: 058
  4. LEFLUNOMIDE [Concomitant]
     Indication: RHEUMATOID ARTHRITIS
     Route: 048

REACTIONS (1)
  - CERVIX CARCINOMA STAGE 0 [None]
